FAERS Safety Report 9757472 (Version 4)
Quarter: 2014Q1

REPORT INFORMATION
  Report Type: Spontaneous
  Country: US (occurrence: US)
  Receive Date: 20131215
  Receipt Date: 20140116
  Transmission Date: 20141002
  Serious: Yes (Life-Threatening)
  Sender: FDA-Public Use
  Company Number: US-009507513-1312USA005873

PATIENT
  Age: 72 Year
  Sex: Female

DRUGS (3)
  1. PROVENTIL [Suspect]
     Indication: ASTHMA
     Dosage: 1-2 PUFFS AS NEEDED FOR CHEST SYMPTOMS
     Route: 055
     Dates: start: 2011
  2. LOSARTAN POTASSIUM TABLETS [Concomitant]
  3. MULTIVITAMIN [Concomitant]

REACTIONS (5)
  - Dyspnoea [Recovered/Resolved]
  - Incorrect dose administered by device [Unknown]
  - Product quality issue [Unknown]
  - Asthma [Recovered/Resolved]
  - Underdose [Unknown]
